FAERS Safety Report 6470857-1 (Version None)
Quarter: 2009Q4

REPORT INFORMATION
  Report Type: 
  Country: None (occurrence: None)
  Receive Date: 20091203
  Receipt Date: 20080213
  Transmission Date: 20100525
  Serious: Yes (Hospitalization, Other)
  Sender: FDA-Public Use
  Company Number: US-ELI_LILLY_AND_COMPANY-US200801000233

PATIENT
  Sex: Male
  Weight: 78.458 kg

DRUGS (8)
  1. FORTEO [Suspect]
     Indication: OSTEOPOROSIS
     Dosage: 20 UG, DAILY (1/D)
     Dates: start: 20070801, end: 20071227
  2. FORTEO [Suspect]
     Dosage: 20 UG, DAILY (1/D)
     Dates: start: 20071231
  3. LIPITOR [Concomitant]
     Indication: BLOOD CHOLESTEROL INCREASED
  4. ATACAND [Concomitant]
     Indication: HYPERTENSION
  5. NORVASC [Concomitant]
     Dosage: UNK, UNK
  6. TOPROL-XL [Concomitant]
  7. FOSAMAX [Concomitant]
  8. FLOMAX [Concomitant]

REACTIONS (6)
  - CORONARY ARTERY ANEURYSM [None]
  - CORONARY ARTERY DISEASE [None]
  - CORONARY ARTERY STENOSIS [None]
  - FEELING ABNORMAL [None]
  - FRUSTRATION [None]
  - MOBILITY DECREASED [None]
